FAERS Safety Report 4646863-6 (Version None)
Quarter: 2005Q2

REPORT INFORMATION
  Report Type: 
  Country: None (occurrence: None)
  Receive Date: 20050331
  Receipt Date: 20050114
  Transmission Date: 20051028
  Serious: No
  Sender: FDA-Public Use
  Company Number: 05P-163-0286734-00

PATIENT
  Age: 67 Year
  Sex: Female
  Weight: 67.1324 kg

DRUGS (9)
  1. HUMIRA [Suspect]
     Indication: INFLAMMATION
     Dosage: 40 MG, 1 IN 2 WK, SUBCUTANEOUS
     Route: 058
     Dates: start: 20041201
  2. METHOTREXATE SODIUM [Concomitant]
  3. FOLIC ACID [Concomitant]
  4. ALENDRONATE SODIUM [Concomitant]
  5. SELANDEC [Concomitant]
  6. BENICAR [Concomitant]
  7. MULTI-VITAMINS [Concomitant]
  8. ASCORBIC ACID [Concomitant]
  9. ASPIRIN [Concomitant]

REACTIONS (2)
  - COUGH [None]
  - NASOPHARYNGITIS [None]
